FAERS Safety Report 11030877 (Version 1)
Quarter: 2015Q2

REPORT INFORMATION
  Report Type: Spontaneous
  Country: JP (occurrence: JP)
  Receive Date: 20150415
  Receipt Date: 20150415
  Transmission Date: 20150821
  Serious: Yes (Death, Hospitalization)
  Sender: FDA-Public Use
  Company Number: JP-BAYER-2014-177079

PATIENT
  Age: 67 Year
  Sex: Male
  Weight: 59.86 kg

DRUGS (2)
  1. STIVARGA [Suspect]
     Active Substance: REGORAFENIB
     Indication: COLON CANCER
     Dosage: 160 MG, QD (ON FOR 3 WEEKS AND OFF FOR 1 WEEK)
     Route: 048
     Dates: start: 20141111, end: 20141123
  2. ELENTAL [Concomitant]
     Active Substance: MINERALS\VITAMINS
     Indication: COLON CANCER
     Dosage: UNK
     Route: 048
     Dates: start: 20141118, end: 20141123

REACTIONS (4)
  - Colon cancer [Fatal]
  - Platelet count decreased [Recovered/Resolved]
  - Pyrexia [Recovered/Resolved]
  - Rash [Recovered/Resolved]

NARRATIVE: CASE EVENT DATE: 20141122
